FAERS Safety Report 10728297 (Version 1)
Quarter: 2015Q1

REPORT INFORMATION
  Report Type: Spontaneous
  Country: US (occurrence: US)
  Receive Date: 20150121
  Receipt Date: 20150121
  Transmission Date: 20150721
  Serious: No
  Sender: FDA-Public Use
  Company Number: US-AMGEN INC.-USASP2015003940

PATIENT
  Age: 49 Year
  Sex: Male

DRUGS (1)
  1. ENBREL [Suspect]
     Active Substance: ETANERCEPT
     Indication: ANKYLOSING SPONDYLITIS
     Dosage: 50 MG, QWK
     Route: 065
     Dates: start: 20050920

REACTIONS (6)
  - Gingival swelling [Recovered/Resolved]
  - Wisdom teeth removal [Recovered/Resolved]
  - Toothache [Recovered/Resolved]
  - Gingival pain [Recovered/Resolved]
  - Tooth fracture [Recovered/Resolved]
  - Temporomandibular joint syndrome [Recovered/Resolved]

NARRATIVE: CASE EVENT DATE: 201401
